FAERS Safety Report 7852650-8 (Version None)
Quarter: 2011Q4

REPORT INFORMATION
  Report Type: 
  Country: None (occurrence: None)
  Receive Date: 20111026
  Receipt Date: 20111019
  Transmission Date: 20120403
  Serious: Yes (Hospitalization)
  Sender: FDA-Public Use
  Company Number: FR-GLAXOSMITHKLINE-B0756553A

PATIENT
  Age: 85 Year
  Sex: Female

DRUGS (9)
  1. VALACYCLOVIR HYDROCHLORIDE [Suspect]
     Route: 048
     Dates: start: 20110617, end: 20110715
  2. MABTHERA [Suspect]
     Indication: CHRONIC MYELOID LEUKAEMIA
     Route: 042
     Dates: start: 20110617, end: 20110617
  3. BACTRIM [Suspect]
     Dosage: 1UNIT THREE TIMES PER WEEK
     Route: 048
     Dates: start: 20110617, end: 20110715
  4. ZOFRAN [Suspect]
     Indication: PREMEDICATION
     Route: 042
     Dates: start: 20110617, end: 20110618
  5. FLUDARABINE [Suspect]
     Indication: CHRONIC MYELOID LEUKAEMIA
     Route: 042
     Dates: start: 20110617, end: 20110618
  6. CYCLOPHOSPHAMIDE [Suspect]
     Indication: CHRONIC MYELOID LEUKAEMIA
     Route: 042
     Dates: start: 20110617, end: 20110618
  7. ACETAMINOPHEN [Suspect]
     Route: 065
     Dates: start: 20110617, end: 20110617
  8. SOLU-MEDROL [Suspect]
     Route: 065
     Dates: start: 20110617, end: 20110617
  9. POLARAMINE [Suspect]
     Route: 065
     Dates: start: 20110617, end: 20110617

REACTIONS (1)
  - ERYTHEMA MULTIFORME [None]
